FAERS Safety Report 14668284 (Version 1)
Quarter: 2018Q1

REPORT INFORMATION
  Report Type: Spontaneous
  Country: US (occurrence: US)
  Receive Date: 20180320
  Receipt Date: 20180320
  Transmission Date: 20180509
  Serious: Yes (Hospitalization)
  Sender: FDA-Public Use
  Company Number: None

PATIENT
  Age: 54 Year
  Sex: Male
  Weight: 71.8 kg

DRUGS (3)
  1. GEMCITABINE HYDROCHLORIDE. [Suspect]
     Active Substance: GEMCITABINE HYDROCHLORIDE
     Dates: end: 20171219
  2. TAXOL [Suspect]
     Active Substance: PACLITAXEL
     Dates: end: 20171219
  3. CISPLATIN. [Suspect]
     Active Substance: CISPLATIN
     Dates: end: 20170822

REACTIONS (2)
  - Intracranial venous sinus thrombosis [None]
  - Embolism [None]

NARRATIVE: CASE EVENT DATE: 20180312
